FAERS Safety Report 5201263-5 (Version None)
Quarter: 2007Q1

REPORT INFORMATION
  Report Type: 
  Country: None (occurrence: None)
  Receive Date: 20070108
  Receipt Date: 20061226
  Transmission Date: 20070707
  Serious: Yes (Other)
  Sender: FDA-Public Use
  Company Number: US-ELI_LILLY_AND_COMPANY-US200610001099

PATIENT
  Age: 60 Year
  Sex: Female

DRUGS (21)
  1. FORTEO [Suspect]
     Indication: OSTEOPOROSIS
     Dosage: UNK, UNK
     Dates: start: 20060201
  2. BUMEX [Concomitant]
  3. MAGNESIUM [Concomitant]
  4. HEPARIN [Concomitant]
  5. PLAVIX                                  /UNK/ [Concomitant]
  6. KADIAN ^KNOLL^ [Concomitant]
  7. CELEXA [Concomitant]
  8. PREDNISONE TAB [Concomitant]
  9. TRAZODONE HCL [Concomitant]
  10. VICODIN [Concomitant]
  11. VISTARIL [Concomitant]
  12. PRILOSEC [Concomitant]
  13. METHOTREXATE [Concomitant]
  14. TOPRAL [Concomitant]
  15. LISINOPRIL [Concomitant]
  16. METOLAZONE [Concomitant]
  17. SPIRONOLACTONE [Concomitant]
  18. COREG [Concomitant]
  19. GLYBURIDE [Concomitant]
  20. INSULIN [Concomitant]
  21. NEURONTIN [Concomitant]

REACTIONS (5)
  - CONVULSION [None]
  - FALL [None]
  - FRACTURED COCCYX [None]
  - LOSS OF CONSCIOUSNESS [None]
  - PHARMACEUTICAL PRODUCT COMPLAINT [None]
